FAERS Safety Report 4471556-8 (Version None)
Quarter: 2004Q4

REPORT INFORMATION
  Report Type: 
  Country: None (occurrence: None)
  Receive Date: 20041012
  Receipt Date: 20031210
  Transmission Date: 20050328
  Serious: Yes (Life-Threatening, Hospitalization, Other)
  Sender: FDA-Public Use
  Company Number: US-GLAXOSMITHKLINE-A0442643A

PATIENT
  Age: 40 Year
  Sex: Female

DRUGS (5)
  1. LEXIVA [Suspect]
     Indication: HIV INFECTION
     Dosage: 1400TAB TWICE PER DAY
     Route: 048
     Dates: start: 20031118
  2. COUMADIN [Concomitant]
  3. LAMIVUDINE [Concomitant]
  4. TENOFOVIR [Concomitant]
  5. ACYCLOVIR [Concomitant]

REACTIONS (4)
  - BLEEDING TIME PROLONGED [None]
  - BLOOD URINE PRESENT [None]
  - HAEMORRHAGE [None]
  - INTERNATIONAL NORMALISED RATIO INCREASED [None]
